FAERS Safety Report 5321917-X (Version None)
Quarter: 2007Q2

REPORT INFORMATION
  Report Type: 
  Country: None (occurrence: None)
  Receive Date: 20070508
  Receipt Date: 20070508
  Transmission Date: 20071010
  Serious: Yes (Other)
  Sender: FDA-Public Use
  Company Number: None

PATIENT
  Sex: Female
  Weight: 58.0604 kg

DRUGS (1)
  1. FOSAMAX [Suspect]
     Indication: OSTEOPENIA
     Dosage: 70 MG WEEKLY MOUTH
     Route: 048
     Dates: start: 20000101, end: 20060101

REACTIONS (3)
  - BONE DENSITY DECREASED [None]
  - DIZZINESS [None]
  - WEIGHT DECREASED [None]
